FAERS Safety Report 24737967 (Version 1)
Quarter: 2024Q4

REPORT INFORMATION
  Report Type: Report from Study
  Country: KR (occurrence: KR)
  Receive Date: 20241216
  Receipt Date: 20241216
  Transmission Date: 20250115
  Serious: Yes (Hospitalization)
  Sender: ABBVIE
  Company Number: KR-ABBVIE-6043679

PATIENT
  Age: 57 Year
  Sex: Female
  Weight: 64 kg

DRUGS (9)
  1. RINVOQ [Suspect]
     Active Substance: UPADACITINIB
     Indication: Rheumatoid arthritis
     Dosage: FORM STRENGTH: 15 MILLIGRAM
     Route: 048
     Dates: start: 20230306
  2. DUROC [Concomitant]
     Indication: Rheumatoid arthritis
     Route: 048
     Dates: start: 20140530
  3. Sinil folic acid [Concomitant]
     Indication: Vitamin supplementation
     Route: 048
     Dates: start: 20140530
  4. Feroba you sr [Concomitant]
     Indication: Mineral supplementation
     Route: 048
     Dates: start: 20161013
  5. CELE V [Concomitant]
     Indication: Rheumatoid arthritis
     Route: 048
     Dates: start: 20220701
  6. CALCIUM CARBONATE\CHOLECALCIFEROL [Concomitant]
     Active Substance: CALCIUM CARBONATE\CHOLECALCIFEROL
     Indication: Vitamin supplementation
     Route: 048
     Dates: start: 20180412
  7. PROLIA [Concomitant]
     Active Substance: DENOSUMAB
     Indication: Osteoporosis prophylaxis
     Dosage: FREQUENCY TEXT: PRN?PREFILLED SYRINGE
     Route: 058
     Dates: start: 20220613
  8. Methotrexate koreaunited [Concomitant]
     Indication: Rheumatoid arthritis
     Dosage: FORM STRENGTH: 2.5 MILLIGRAM
     Route: 048
     Dates: start: 20140530
  9. PREDNISOLONE [Concomitant]
     Active Substance: PREDNISOLONE
     Indication: Rheumatoid arthritis
     Dates: start: 20181203

REACTIONS (1)
  - Osteotomy [Recovered/Resolved with Sequelae]

NARRATIVE: CASE EVENT DATE: 20230801
